FAERS Safety Report 6354778-0 (Version None)
Quarter: 2009Q3

REPORT INFORMATION
  Report Type: 
  Country: None (occurrence: None)
  Receive Date: 20090914
  Receipt Date: 20090902
  Transmission Date: 20100115
  Serious: Yes (Other)
  Sender: FDA-Public Use
  Company Number: US-PFIZER INC-2008089407

PATIENT
  Age: 55 Year
  Sex: Female

DRUGS (2)
  1. CHANTIX [Suspect]
  2. LYRICA [Suspect]

REACTIONS (5)
  - ARTHRALGIA [None]
  - CHEST PAIN [None]
  - NARCOLEPSY [None]
  - NAUSEA [None]
  - OBSESSIVE-COMPULSIVE DISORDER [None]
